FAERS Safety Report 26044864 (Version 1)
Quarter: 2025Q4

REPORT INFORMATION
  Report Type: Spontaneous
  Country: RS (occurrence: RS)
  Receive Date: 20251114
  Receipt Date: 20251114
  Transmission Date: 20260118
  Serious: Yes (Death)
  Sender: BOEHRINGER INGELHEIM
  Company Number: RS-BoehringerIngelheim-2025-BI-107169

PATIENT

DRUGS (1)
  1. OFEV [Suspect]
     Active Substance: NINTEDANIB
     Indication: Idiopathic pulmonary fibrosis

REACTIONS (1)
  - Death [Fatal]
